FAERS Safety Report 16881079 (Version 5)
Quarter: 2019Q4

REPORT INFORMATION
  Report Type: Report from Study
  Country: CA (occurrence: CA)
  Receive Date: 20191003
  Receipt Date: 20191226
  Transmission Date: 20200122
  Serious: Yes (Other)
  Sender: FDA-Public Use
  Company Number: CA-PFIZER INC-2016544485

PATIENT
  Age: 69 Year
  Sex: Female

DRUGS (17)
  1. CORTENEMA [Concomitant]
     Active Substance: HYDROCORTISONE
     Dosage: UNK, QD
     Route: 054
  2. BISOPROLOL [Concomitant]
     Active Substance: BISOPROLOL
     Dosage: 2.5 MG, QD
  3. ENTYVIO [Suspect]
     Active Substance: VEDOLIZUMAB
     Indication: COLITIS ULCERATIVE
     Dosage: 300 MILLIGRAM
     Route: 042
     Dates: start: 20160531
  4. PLAVIX [Concomitant]
     Active Substance: CLOPIDOGREL BISULFATE
     Dosage: 75 MG, QD
     Dates: start: 2008
  5. SYNTHROID [Concomitant]
     Active Substance: LEVOTHYROXINE SODIUM
     Dosage: 0.088 MG, QD
  6. EZETIMIBE. [Concomitant]
     Active Substance: EZETIMIBE
     Indication: BLOOD CHOLESTEROL
     Dosage: 10 MG, QD
  7. ENTYVIO [Suspect]
     Active Substance: VEDOLIZUMAB
     Dosage: 300 MILLIGRAM
     Route: 042
  8. ENTYVIO [Suspect]
     Active Substance: VEDOLIZUMAB
     Dosage: 300 MILLIGRAM
     Route: 042
  9. ENTYVIO [Suspect]
     Active Substance: VEDOLIZUMAB
     Dosage: 300 MILLIGRAM, Q4WEEKS
     Dates: start: 20160531
  10. PANTOLOC [Suspect]
     Active Substance: PANTOPRAZOLE SODIUM
     Dosage: 40 MG, BID
     Dates: start: 20141114
  11. PROLIA [Concomitant]
     Active Substance: DENOSUMAB
     Indication: OSTEOPOROSIS
     Dosage: UNK
  12. ENTYVIO [Suspect]
     Active Substance: VEDOLIZUMAB
     Dosage: 300 MILLIGRAM
     Route: 042
  13. CALCIUM WITH VITAMIN D [Concomitant]
     Active Substance: CALCIUM\VITAMIN D
     Dosage: UNK, BID
  14. EZETROL [Concomitant]
     Active Substance: EZETIMIBE
     Indication: BLOOD CHOLESTEROL INCREASED
     Dosage: 10 MG, QD
  15. ENTYVIO [Suspect]
     Active Substance: VEDOLIZUMAB
     Dosage: 300 MILLIGRAM
     Route: 042
  16. ENTYVIO [Suspect]
     Active Substance: VEDOLIZUMAB
     Dosage: 300 MILLIGRAM, Q4WEEKS
     Route: 042
  17. ENTYVIO [Suspect]
     Active Substance: VEDOLIZUMAB
     Dosage: 300 MILLIGRAM, Q4WEEKS
     Route: 042
     Dates: start: 20190924

REACTIONS (9)
  - Poor venous access [Unknown]
  - Blood pressure increased [Unknown]
  - Haematochezia [Unknown]
  - Gastrointestinal inflammation [Recovering/Resolving]
  - Heart rate decreased [Unknown]
  - Abdominal pain upper [Unknown]
  - Abdominal distension [Unknown]
  - Pulse abnormal [Not Recovered/Not Resolved]
  - Dyspnoea [Not Recovered/Not Resolved]

NARRATIVE: CASE EVENT DATE: 20161111
